FAERS Safety Report 14493094 (Version 1)
Quarter: 2018Q1

REPORT INFORMATION
  Report Type: Spontaneous
  Country: US (occurrence: US)
  Receive Date: 20180205
  Receipt Date: 20180205
  Transmission Date: 20180509
  Serious: Yes (Disabling, Other)
  Sender: FDA-Public Use
  Company Number: None

PATIENT
  Age: 68 Year
  Sex: Female
  Weight: 138.6 kg

DRUGS (18)
  1. EPINEPHRINE. [Concomitant]
     Active Substance: EPINEPHRINE
  2. BUDESONIDE. [Concomitant]
     Active Substance: BUDESONIDE
  3. NITROGLYCERIN. [Concomitant]
     Active Substance: NITROGLYCERIN
  4. CLOPIDOGREL BISULFATE. [Concomitant]
     Active Substance: CLOPIDOGREL BISULFATE
  5. OMEGA 3 [Concomitant]
     Active Substance: OMEGA-3 FATTY ACIDS
  6. RIFAXIMIN. [Concomitant]
     Active Substance: RIFAXIMIN
  7. FLUTICASONE FUROATE NASAL SPRAY [Concomitant]
     Active Substance: FLUTICASONE FUROATE
  8. TIOTROPIUM BROMIDE MONOHYDRATE [Concomitant]
     Active Substance: TIOTROPIUM BROMIDE MONOHYDRATE
  9. KRILL OIL [Concomitant]
     Active Substance: DIETARY SUPPLEMENT
  10. MONTELUKAST SODIUM. [Concomitant]
     Active Substance: MONTELUKAST SODIUM
  11. LOPERAMIDE HCL [Concomitant]
     Active Substance: LOPERAMIDE HYDROCHLORIDE
  12. LEVOTHYROXINE SODIUM. [Concomitant]
     Active Substance: LEVOTHYROXINE SODIUM
  13. BUDESONIDE-FORMOTEROL FUMARATE [Concomitant]
  14. POLYETHYLENE GLYCOL 3350. [Concomitant]
     Active Substance: POLYETHYLENE GLYCOL 3350
  15. HYDROCORTISONE EX [Concomitant]
  16. COENZYME Q10 [Concomitant]
     Active Substance: UBIDECARENONE
  17. ROSUVASTIN [Suspect]
     Active Substance: ROSUVASTATIN
     Indication: BLOOD CHOLESTEROL INCREASED
     Dosage: ?          QUANTITY:30 TABLET(S);?
     Route: 048
     Dates: start: 20171122, end: 20180124
  18. IMODIUM A-D [Concomitant]
     Active Substance: LOPERAMIDE HYDROCHLORIDE

REACTIONS (4)
  - Muscular weakness [None]
  - Fall [None]
  - Cognitive disorder [None]
  - Contusion [None]

NARRATIVE: CASE EVENT DATE: 20180124
